FAERS Safety Report 11228867 (Version 1)
Quarter: 2015Q2

REPORT INFORMATION
  Report Type: Spontaneous
  Country: AT (occurrence: AT)
  Receive Date: 20150630
  Receipt Date: 20150630
  Transmission Date: 20150821
  Serious: Yes (Other)
  Sender: FDA-Public Use
  Company Number: AT-GLAXOSMITHKLINE-AT2015GSK085211

PATIENT
  Sex: Male
  Weight: 78 kg

DRUGS (5)
  1. ENLAPRIL [Concomitant]
     Active Substance: ENALAPRIL
     Indication: HYPERTENSION
  2. LAMICTAL [Suspect]
     Active Substance: LAMOTRIGINE
     Indication: GENERALISED TONIC-CLONIC SEIZURE
     Dosage: 50 MG, UNK
     Dates: start: 2009, end: 2014
  3. NITRENDIPINE [Concomitant]
     Active Substance: NITRENDIPINE
     Indication: HYPERTENSION
  4. NEBIVOLOL [Concomitant]
     Active Substance: NEBIVOLOL
     Indication: HYPERTENSION
     Dosage: EVENING
  5. LAMICTAL [Suspect]
     Active Substance: LAMOTRIGINE
     Dosage: 300 MG, UNK
     Dates: start: 2014, end: 2015

REACTIONS (1)
  - Memory impairment [Not Recovered/Not Resolved]

NARRATIVE: CASE EVENT DATE: 201410
